FAERS Safety Report 9521893 (Version 1)
Quarter: 2013Q1

REPORT INFORMATION
  Report Type: Spontaneous
  Country: US (occurrence: None)
  Receive Date: 20130305
  Receipt Date: 20130305
  Transmission Date: 20140127
  Serious: Yes (Hospitalization, Other)
  Sender: FDA-Public Use
  Company Number: 163-21880-12072319

PATIENT
  Age: 74 Year
  Sex: Male
  Weight: 99.79 kg

DRUGS (23)
  1. REVLIMID (LENALIDOMIDE) (CAPSULES) [Suspect]
     Indication: PLASMA CELL MYELOMA
     Dosage: 25 MG, 21 IN 21 D, PO
     Route: 048
     Dates: start: 20110802
  2. ASA (ACETYLSALICYLIC ACID) [Concomitant]
  3. DIOVAN HCT (CO-DIOVAN) [Concomitant]
  4. SYNTHROID (LEVOTHYROXINE SODIUM) [Concomitant]
  5. ZOMETA (ZOLEDRONIC ACID) [Concomitant]
  6. DEXAMETHASONE (DEXAMETHASONE) [Concomitant]
  7. CLARITIN (LORATADINE) [Concomitant]
  8. COLACE (DOCUSATE SODIUM) [Concomitant]
  9. COREG (CARVEDILOL) [Concomitant]
  10. COUMADIN (WARFARIN SODIUM0 [Concomitant]
  11. DUONES (COMBIVENT) [Concomitant]
  12. HYDROCODONE (HYDROCODONE) [Concomitant]
  13. LACTULOSE (LACTULOSE) [Concomitant]
  14. MIRALAX [Concomitant]
  15. MULTIPLE VITAMINS (MULTIPLE VITAMINS) [Concomitant]
  16. PEPCID (FAMOTIDINE) [Concomitant]
  17. XANAX (ALPRAZOLAM) [Concomitant]
  18. ZYRTEC (CETIRIZINE HYDROCHLORIDE) [Concomitant]
  19. AUGMENTIN (CLAVULIN) [Concomitant]
  20. OMEPRAZOLE (OMEPRAZOLE) [Concomitant]
  21. CENTRUM SILVER (CENTRUM SILVER) [Concomitant]
  22. SIMVASTATIN (SIMVASTATIN) [Concomitant]
  23. VIMOVO (VIMOVO) [Concomitant]

REACTIONS (4)
  - Pulmonary embolism [None]
  - Syncope [None]
  - Renal failure acute [None]
  - Plasma cell myeloma [None]
